FAERS Safety Report 10079386 (Version 1)
Quarter: 2014Q2

REPORT INFORMATION
  Report Type: Report from Study
  Country: IN (occurrence: IN)
  Receive Date: 20140415
  Receipt Date: 20140415
  Transmission Date: 20141212
  Serious: Yes (Hospitalization)
  Sender: FDA-Public Use
  Company Number: PHHY2014IN044906

PATIENT
  Age: 80 Year
  Sex: Female

DRUGS (10)
  1. ACLASTA [Suspect]
     Indication: OSTEOPOROSIS
     Dosage: 5 MG/100ML/YEAR
     Route: 042
  2. ACLASTA [Suspect]
     Dosage: 5 MG/100ML/YEAR
     Route: 042
  3. ACLASTA [Suspect]
     Dosage: 5 MG/100ML/YEAR
     Route: 042
  4. ACLASTA [Suspect]
     Dosage: 5 MG/100ML/YEAR
     Route: 042
     Dates: start: 20131022
  5. CALCIUM [Concomitant]
     Indication: BLOOD CALCIUM ABNORMAL
     Dosage: UNK UKN, UNK
     Route: 048
  6. DOROFEN [Concomitant]
     Indication: PAIN
     Dosage: UNK UKN, UNK
     Route: 048
  7. ULTRACET [Concomitant]
     Indication: PAIN
     Dosage: UNK UKN, UNK
     Route: 048
  8. LENNON COUGH [Concomitant]
     Indication: PAIN
     Dosage: UNK UKN, UNK
     Route: 048
  9. ESOMAX [Concomitant]
     Indication: HYPERTENSION
     Dosage: 80 MG, UNK
     Route: 048
  10. ANTIHYPERTENSIVE DRUGS [Concomitant]
     Indication: HYPERTENSION
     Dosage: UNK UKN, UNK

REACTIONS (6)
  - Pelvic fracture [Not Recovered/Not Resolved]
  - Abasia [Unknown]
  - Dysstasia [Unknown]
  - Fall [Not Recovered/Not Resolved]
  - Bone pain [Not Recovered/Not Resolved]
  - Pain [Unknown]
